FAERS Safety Report 8236277-4 (Version None)
Quarter: 2012Q1

REPORT INFORMATION
  Report Type: 
  Country: None (occurrence: None)
  Receive Date: 20120309
  Receipt Date: 20110721
  Transmission Date: 20120608
  Serious: Yes (Other)
  Sender: FDA-Public Use
  Company Number: PHHY2010US41654

PATIENT
  Age: 42 Year
  Sex: Female
  Weight: 86.2 kg

DRUGS (18)
  1. LEVOTHYROXINE (LEVOTHYROXINE) PILL (EXCEPT TABLETS) [Concomitant]
  2. ADDERALL 10 [Concomitant]
  3. ZOCOR [Concomitant]
  4. TYSABRI [Concomitant]
  5. VITAMIN D [Concomitant]
  6. BACLOFEN [Concomitant]
  7. PRILOSEC [Concomitant]
  8. LEXAPRO [Concomitant]
  9. METFORMIN HCL [Concomitant]
  10. EXTAVIA [Suspect]
     Indication: MULTIPLE SCLEROSIS
     Dosage: 0.3 MG, QOD, SUBCUTANEOUS
     Route: 058
     Dates: start: 20100601, end: 20110401
  11. NEURONTIN [Concomitant]
  12. SIMVASTATIN [Concomitant]
  13. RELAFEN [Concomitant]
  14. VITAMIN B12 [Concomitant]
  15. DEPOSHOT [Concomitant]
  16. GABAPENTIN (GABAPENTIN) PILL ( EXCEPT TABLETS) [Concomitant]
  17. FOLATE SODIUM (FOLATE SODIUM) [Concomitant]
  18. HYDROCHLOROTHIAZIDE [Concomitant]

REACTIONS (22)
  - HIGH DENSITY LIPOPROTEIN INCREASED [None]
  - INSOMNIA [None]
  - LIMB DISCOMFORT [None]
  - MULTIPLE SCLEROSIS [None]
  - LOW DENSITY LIPOPROTEIN INCREASED [None]
  - HEART RATE INCREASED [None]
  - PARAESTHESIA [None]
  - DIARRHOEA [None]
  - MICTURITION URGENCY [None]
  - NERVOUSNESS [None]
  - RESPIRATORY RATE INCREASED [None]
  - DRUG INEFFECTIVE [None]
  - FATIGUE [None]
  - BLOOD THYROID STIMULATING HORMONE INCREASED [None]
  - HYPOAESTHESIA [None]
  - DEPRESSION [None]
  - TREMOR [None]
  - HEADACHE [None]
  - INJECTION SITE MASS [None]
  - GAIT DISTURBANCE [None]
  - MUSCULAR WEAKNESS [None]
  - HAEMOGLOBIN DECREASED [None]
